FAERS Safety Report 11583333 (Version 1)
Quarter: 2015Q4

REPORT INFORMATION
  Report Type: Spontaneous
  Country: DK (occurrence: DK)
  Receive Date: 20151001
  Receipt Date: 20151001
  Transmission Date: 20160304
  Serious: Yes (Disabling)
  Sender: FDA-Public Use
  Company Number: DK-ACCORD-033895

PATIENT
  Sex: Female

DRUGS (1)
  1. LETROZOLE. [Suspect]
     Active Substance: LETROZOLE
     Indication: BREAST CANCER
     Dosage: RECEIVED FOR FEW MONTHS.

REACTIONS (2)
  - Arthralgia [Recovering/Resolving]
  - Muscular weakness [Recovering/Resolving]
